FAERS Safety Report 8557239-3 (Version None)
Quarter: 2012Q3

REPORT INFORMATION
  Report Type: 
  Country: None (occurrence: None)
  Receive Date: 20120801
  Receipt Date: 20120727
  Transmission Date: 20120928
  Serious: Yes (Other)
  Sender: FDA-Public Use
  Company Number: PHEH2012US011781

PATIENT
  Sex: Female
  Weight: 54.422 kg

DRUGS (12)
  1. GILENYA [Suspect]
     Indication: MULTIPLE SCLEROSIS
     Dosage: 0.5 MG, QD
     Route: 048
     Dates: start: 20120502
  2. FLEXERIL [Concomitant]
     Dosage: UNK UKN, UNK
  3. XYZAL [Concomitant]
     Dosage: UNK UKN, UNK
  4. BENTYL [Concomitant]
     Dosage: UNK UKN, UNK
  5. CELEBREX [Concomitant]
     Dosage: UNK UKN, UNK
  6. PROTONIX [Concomitant]
     Dosage: UNK UKN, UNK
  7. ASPIRIN [Concomitant]
     Dosage: UNK UKN, UNK
  8. BENADRYL CD [Concomitant]
     Dosage: UNK UKN, UNK
  9. ANAPROX [Concomitant]
     Dosage: UNK UKN, UNK
  10. FIORICET [Concomitant]
     Dosage: UNK UKN, UNK
  11. FAMPRIDINE [Concomitant]
     Dosage: UNK UKN, UNK
  12. COZAAR [Concomitant]
     Dosage: 100 MG, UNK

REACTIONS (11)
  - ASTHENIA [None]
  - HYPOAESTHESIA [None]
  - MUSCLE RIGIDITY [None]
  - EYE IRRITATION [None]
  - EYE PAIN [None]
  - FATIGUE [None]
  - CHEST DISCOMFORT [None]
  - PAIN IN EXTREMITY [None]
  - SENSATION OF HEAVINESS [None]
  - GAIT DISTURBANCE [None]
  - BLOOD PRESSURE INCREASED [None]
